FAERS Safety Report 12671682 (Version 3)
Quarter: 2016Q4

REPORT INFORMATION
  Report Type: Spontaneous
  Country: US (occurrence: US)
  Receive Date: 20160822
  Receipt Date: 20161121
  Transmission Date: 20170207
  Serious: No
  Sender: FDA-Public Use
  Company Number: US-JNJFOC-20160715913

PATIENT
  Age: 51 Year
  Sex: Male

DRUGS (2)
  1. BENADRYL [Concomitant]
     Active Substance: DIPHENHYDRAMINE HYDROCHLORIDE
     Dosage: ALL DATES OF TREATMENT
     Route: 042
  2. DARZALEX [Suspect]
     Active Substance: DARATUMUMAB
     Indication: PLASMA CELL MYELOMA
     Dosage: QOWX8/MONTHLY (ALSO REPORTED AS WKX8)
     Route: 042
     Dates: start: 20160707

REACTIONS (8)
  - Back pain [Recovered/Resolved]
  - Feeling abnormal [Recovered/Resolved]
  - Bronchospasm [Recovered/Resolved]
  - Cough [Recovered/Resolved]
  - Infusion related reaction [Recovered/Resolved]
  - Dyspnoea [Recovered/Resolved]
  - Back pain [Recovered/Resolved]
  - Sneezing [Recovered/Resolved]

NARRATIVE: CASE EVENT DATE: 2016
